FAERS Safety Report 25665301 (Version 2)
Quarter: 2025Q3

REPORT INFORMATION
  Report Type: Report from Study
  Country: US (occurrence: US)
  Receive Date: 20250811
  Receipt Date: 20250827
  Transmission Date: 20251020
  Serious: Yes (Death, Hospitalization)
  Sender: IMMUNOCORE
  Company Number: US-IMMUNOCORE, LTD.-2025-IMC-004516

PATIENT
  Age: 66 Year
  Sex: Female

DRUGS (5)
  1. KIMMTRAK [Suspect]
     Active Substance: TEBENTAFUSP-TEBN
     Indication: Metastatic ocular melanoma
  2. PROAIR DIGIHALER [Concomitant]
     Active Substance: ALBUTEROL SULFATE
     Indication: Product used for unknown indication
  3. BREZTRI [Concomitant]
     Active Substance: BUDESONIDE\FORMOTEROL\GLYCOPYRROLATE
     Indication: Product used for unknown indication
  4. OXYCODONE [Concomitant]
     Active Substance: OXYCODONE
     Indication: Product used for unknown indication
  5. XTAMPZA ER [Concomitant]
     Active Substance: OXYCODONE
     Indication: Product used for unknown indication

REACTIONS (8)
  - Death [Fatal]
  - Renal pain [Unknown]
  - Hormone level abnormal [Unknown]
  - Decubitus ulcer [Unknown]
  - Oxygen saturation decreased [Unknown]
  - Blood pressure abnormal [Unknown]
  - Asthenia [Unknown]
  - Tachycardia [Unknown]

NARRATIVE: CASE EVENT DATE: 20250728
